FAERS Safety Report 5135979-6 (Version None)
Quarter: 2006Q4

REPORT INFORMATION
  Report Type: 
  Country: None (occurrence: None)
  Receive Date: 20061020
  Receipt Date: 20061010
  Transmission Date: 20070319
  Serious: Yes (Other)
  Sender: FDA-Public Use
  Company Number: 430006N06FRA

PATIENT
  Age: 27 Year
  Sex: Female

DRUGS (1)
  1. NOVANTRONE [Suspect]
     Dosage: 20 MG, 1 IN 1 MONTHS, INTRAVENOUS
     Route: 042
     Dates: start: 20060103, end: 20060603

REACTIONS (1)
  - BORDERLINE OVARIAN TUMOUR [None]
